FAERS Safety Report 8113454-4 (Version None)
Quarter: 2012Q1

REPORT INFORMATION
  Report Type: 
  Country: None (occurrence: None)
  Receive Date: 20120203
  Receipt Date: 20120123
  Transmission Date: 20120608
  Serious: Yes (Death)
  Sender: FDA-Public Use
  Company Number: JP-UCBSA-050237

PATIENT
  Age: 83 Year
  Sex: Female

DRUGS (2)
  1. KEPPRA [Suspect]
     Route: 048
     Dates: start: 20110606, end: 20111110
  2. NO CONCOMITANT MEDICATIONS [Concomitant]

REACTIONS (1)
  - DEATH [None]
